FAERS Safety Report 5593635-4 (Version None)
Quarter: 2008Q1

REPORT INFORMATION
  Report Type: 
  Country: None (occurrence: None)
  Receive Date: 20080116
  Receipt Date: 20080111
  Transmission Date: 20080703
  Serious: Yes (Hospitalization)
  Sender: FDA-Public Use
  Company Number: GB-RANBAXY-2007RR-05773

PATIENT

DRUGS (3)
  1. PARACETAMOL [Suspect]
     Route: 065
  2. SEROXAT [Suspect]
     Dosage: UNK
     Route: 065
     Dates: start: 20000110
  3. TRAMADOL HYDROCHLORIDE [Concomitant]
     Indication: INTENTIONAL OVERDOSE
     Dosage: UNK
     Dates: start: 20040408

REACTIONS (9)
  - AGGRESSION [None]
  - ALCOHOL POISONING [None]
  - DIZZINESS [None]
  - DRUG WITHDRAWAL SYNDROME [None]
  - NAUSEA [None]
  - OVERDOSE [None]
  - PARAESTHESIA [None]
  - SUICIDAL IDEATION [None]
  - SUICIDE ATTEMPT [None]
